FAERS Safety Report 8722832 (Version 2)
Quarter: 2015Q2

REPORT INFORMATION
  Report Type: Report from Study
  Country: US (occurrence: US)
  Receive Date: 20120814
  Receipt Date: 20150626
  Transmission Date: 20150821
  Serious: Yes (Hospitalization, Other)
  Sender: FDA-Public Use
  Company Number: US-ROCHE-1100991

PATIENT
  Sex: Male

DRUGS (17)
  1. ASPIRIN. [Concomitant]
     Active Substance: ASPIRIN
  2. MORPHINE [Concomitant]
     Active Substance: MORPHINE
     Route: 065
  3. LIDOCAINE. [Concomitant]
     Active Substance: LIDOCAINE
  4. NITROGLYCERINE IV [Concomitant]
     Route: 042
  5. PROCARDIA (UNITED STATES) [Concomitant]
     Route: 048
  6. ACTIVASE [Suspect]
     Active Substance: ALTEPLASE
     Indication: CARDIAC FAILURE CONGESTIVE
     Route: 042
  7. ACTIVASE [Suspect]
     Active Substance: ALTEPLASE
     Indication: ACUTE MYOCARDIAL INFARCTION
  8. HEPARIN [Concomitant]
     Active Substance: HEPARIN SODIUM
     Dosage: 1000 UNITS PER HOUR
     Route: 040
  9. GLYCERYL TRINITRATE [Concomitant]
     Active Substance: NITROGLYCERIN
  10. ZYLOPRIM [Concomitant]
     Active Substance: ALLOPURINOL
     Route: 065
  11. MONOPRIL [Concomitant]
     Active Substance: FOSINOPRIL SODIUM
     Route: 065
  12. BUMEX [Concomitant]
     Active Substance: BUMETANIDE
  13. LASIX [Concomitant]
     Active Substance: FUROSEMIDE
     Route: 065
  14. DIGOXIN. [Concomitant]
     Active Substance: DIGOXIN
  15. DILTIAZEM HCL [Concomitant]
     Active Substance: DILTIAZEM HYDROCHLORIDE
     Route: 048
  16. QUINAMM [Concomitant]
     Active Substance: QUININE SULFATE
     Route: 048
  17. CARDIZEM [Concomitant]
     Active Substance: DILTIAZEM HYDROCHLORIDE
     Route: 042

REACTIONS (3)
  - Hypotension [Unknown]
  - Chest pain [Unknown]
  - Bradycardia [Unknown]
